FAERS Safety Report 18961312 (Version 1)
Quarter: 2021Q1

REPORT INFORMATION
  Report Type: Spontaneous
  Country: US (occurrence: US)
  Receive Date: 20210302
  Receipt Date: 20210302
  Transmission Date: 20210420
  Serious: No
  Sender: FDA-Public Use
  Company Number: US-BAUSCH-BL-2021-003653

PATIENT
  Sex: Female

DRUGS (2)
  1. APLENZIN [Suspect]
     Active Substance: BUPROPION HYDROBROMIDE
     Indication: DEPRESSION
     Dosage: 174 MG FOR ONE TO TWO MONTHS
     Route: 048
  2. APLENZIN [Suspect]
     Active Substance: BUPROPION HYDROBROMIDE
     Dosage: PATIENT BEGAN TAKING 348 MG
     Route: 048

REACTIONS (6)
  - Lethargy [Unknown]
  - Fatigue [Unknown]
  - Loss of personal independence in daily activities [Unknown]
  - Therapeutic product effect incomplete [Unknown]
  - Therapeutic product effect decreased [Unknown]
  - Apathy [Unknown]
